FAERS Safety Report 21560448 (Version 7)
Quarter: 2022Q4

REPORT INFORMATION
  Report Type: Report from Study
  Country: CA (occurrence: CA)
  Receive Date: 20221107
  Receipt Date: 20221216
  Transmission Date: 20230113
  Serious: Yes (Hospitalization, Other)
  Sender: FDA-Public Use
  Company Number: CA-002147023-NVSC2022CA244042

PATIENT
  Sex: Male

DRUGS (4)
  1. COSENTYX [Suspect]
     Active Substance: SECUKINUMAB
     Indication: Psoriasis
     Dosage: 300 MG, QMO
     Route: 058
     Dates: start: 20221026
  2. COSENTYX [Suspect]
     Active Substance: SECUKINUMAB
     Dosage: UNK
     Route: 065
  3. MOMETASONE [Concomitant]
     Active Substance: MOMETASONE
     Indication: Product used for unknown indication
     Dosage: UNK
     Route: 065
  4. ENSTILAR [Concomitant]
     Active Substance: BETAMETHASONE DIPROPIONATE\CALCIPOTRIENE HYDRATE
     Indication: Product used for unknown indication
     Dosage: UNK
     Route: 065

REACTIONS (41)
  - Parainfluenzae virus infection [Not Recovered/Not Resolved]
  - Malaise [Unknown]
  - Decreased appetite [Unknown]
  - Rhinorrhoea [Not Recovered/Not Resolved]
  - Cough [Not Recovered/Not Resolved]
  - Chills [Unknown]
  - Fungal infection [Unknown]
  - Rectal haemorrhage [Unknown]
  - Sepsis [Unknown]
  - Immunodeficiency [Unknown]
  - Nausea [Recovered/Resolved]
  - Dysgeusia [Recovered/Resolved]
  - Paraesthesia oral [Not Recovered/Not Resolved]
  - Gastrointestinal sounds abnormal [Unknown]
  - Yellow skin [Unknown]
  - Glossodynia [Unknown]
  - Inflammation [Unknown]
  - Gait disturbance [Unknown]
  - Fluid retention [Unknown]
  - Peripheral swelling [Unknown]
  - Joint swelling [Unknown]
  - Tremor [Unknown]
  - Arthralgia [Not Recovered/Not Resolved]
  - Pain in extremity [Unknown]
  - Mobility decreased [Unknown]
  - Dermatitis allergic [Unknown]
  - Localised infection [Unknown]
  - Feeling hot [Unknown]
  - Feeling abnormal [Unknown]
  - Dyspnoea [Not Recovered/Not Resolved]
  - Ocular discomfort [Unknown]
  - Nasal discomfort [Not Recovered/Not Resolved]
  - Skin lesion [Unknown]
  - Stress [Unknown]
  - Erythema [Unknown]
  - Ageusia [Unknown]
  - Productive cough [Unknown]
  - Oropharyngeal pain [Unknown]
  - Anosmia [Unknown]
  - Product dose omission issue [Unknown]
  - Inappropriate schedule of product administration [Unknown]
